FAERS Safety Report 17416106 (Version 1)
Quarter: 2020Q1

REPORT INFORMATION
  Report Type: Other
  Country: US (occurrence: US)
  Receive Date: 20200213
  Receipt Date: 20200213
  Transmission Date: 20200409
  Serious: Yes (Other)
  Sender: FDA-Public Use
  Company Number: US-INTERCEPT-PM2020000318

PATIENT
  Age: 64 Year
  Sex: Female

DRUGS (2)
  1. OCALIVA [Suspect]
     Active Substance: OBETICHOLIC ACID
     Dosage: 5 MG, QD
     Route: 048
     Dates: start: 202001
  2. OCALIVA [Suspect]
     Active Substance: OBETICHOLIC ACID
     Indication: PRIMARY BILIARY CHOLANGITIS
     Dosage: UNK UNK, QD
     Route: 048
     Dates: start: 2016, end: 201905

REACTIONS (6)
  - Nausea [Recovered/Resolved]
  - Rash [Unknown]
  - Hip surgery [Unknown]
  - Anxiety [Not Recovered/Not Resolved]
  - Blood alkaline phosphatase increased [Unknown]
  - Therapy cessation [Unknown]

NARRATIVE: CASE EVENT DATE: 2016
